FAERS Safety Report 5680520-2 (Version None)
Quarter: 2008Q1

REPORT INFORMATION
  Report Type: 
  Country: None (occurrence: None)
  Receive Date: 20080326
  Receipt Date: 20080326
  Transmission Date: 20080703
  Serious: No
  Sender: FDA-Public Use
  Company Number: None

PATIENT
  Age: 66 Year
  Sex: Female

DRUGS (11)
  1. HEPARIN [Suspect]
     Indication: PULMONARY EMBOLISM
     Dosage: 400 U/HR
     Dates: start: 20071227, end: 20080102
  2. LANSOPRAZOLE [Concomitant]
  3. INSULIN [Concomitant]
  4. HYDROCORTISONE [Concomitant]
  5. AMIODARONE HCL [Concomitant]
  6. VANCOMYCIN [Concomitant]
  7. EPINEPHRINE [Concomitant]
  8. MILRINONE LACTATE [Concomitant]
  9. MAALOX [Concomitant]
  10. HALDOL [Concomitant]
  11. POTASSIUM CHLORIDE [Concomitant]

REACTIONS (2)
  - PLATELET COUNT DECREASED [None]
  - PULMONARY EMBOLISM [None]
